FAERS Safety Report 8988736 (Version 1)
Quarter: 2012Q4

REPORT INFORMATION
  Report Type: Spontaneous
  Country: DK (occurrence: None)
  Receive Date: 20121219
  Receipt Date: 20121219
  Transmission Date: 20130627
  Serious: Yes (Hospitalization)
  Sender: FDA-Public Use
  Company Number: 2012MA014109

PATIENT
  Age: 55 Year
  Sex: Female

DRUGS (10)
  1. PACLITAXEL [Suspect]
     Indication: FALLOPIAN TUBE CANCER STAGE I
     Route: 042
     Dates: start: 20120924, end: 20121109
  2. CARBOPLATIN (CARBOPLATIN) [Suspect]
     Indication: FALLOPIAN TUBE CANCER STAGE I
     Route: 042
     Dates: start: 20120924, end: 20121109
  3. AVASTIN (BEVACIZUMAB) [Suspect]
     Indication: FALLOPIAN TUBE CANCER STAGE I
     Route: 042
     Dates: start: 20121107, end: 20121109
  4. ONDANSETRON [Concomitant]
  5. METFORMIN [Concomitant]
  6. SIMVASTATIN [Concomitant]
  7. EMPERAL [Concomitant]
  8. PINEX [Concomitant]
  9. MIRENA [Concomitant]
  10. TEMESTA [Concomitant]

REACTIONS (3)
  - Cough [None]
  - Wound dehiscence [None]
  - Wound evisceration [None]
